FAERS Safety Report 11030838 (Version 1)
Quarter: 2015Q2

REPORT INFORMATION
  Report Type: Spontaneous
  Country: US (occurrence: US)
  Receive Date: 20150415
  Receipt Date: 20150415
  Transmission Date: 20150821
  Serious: No
  Sender: FDA-Public Use
  Company Number: US-009507513-1503USA009726

PATIENT
  Sex: Female

DRUGS (1)
  1. ZONTIVITY [Suspect]
     Active Substance: VORAPAXAR SULFATE
     Indication: CARDIOVASCULAR EVENT PROPHYLAXIS
     Dosage: 2.08 MG, QD
     Route: 048

REACTIONS (1)
  - Saccadic eye movement [Unknown]
